FAERS Safety Report 4512549-1 (Version None)
Quarter: 2004Q4

REPORT INFORMATION
  Report Type: 
  Country: None (occurrence: None)
  Receive Date: 20041008
  Receipt Date: 20040810
  Transmission Date: 20050328
  Serious: Yes (Other)
  Sender: FDA-Public Use
  Company Number: 377463

PATIENT
  Age: 51 Year
  Sex: Male
  Weight: 82.1 kg

DRUGS (1)
  1. FUZEON [Suspect]
     Indication: DRUG USE FOR UNKNOWN INDICATION
     Dosage: SUBCUTANEOUS
     Route: 058
     Dates: start: 20040810

REACTIONS (4)
  - DYSSTASIA [None]
  - PAIN [None]
  - PERIPHERAL COLDNESS [None]
  - RESPIRATORY RATE INCREASED [None]
